FAERS Safety Report 7564472-6 (Version None)
Quarter: 2011Q2

REPORT INFORMATION
  Report Type: 
  Country: None (occurrence: None)
  Receive Date: 20110622
  Receipt Date: 20110614
  Transmission Date: 20111010
  Serious: Yes (Hospitalization, Other)
  Sender: FDA-Public Use
  Company Number: PHHO2011US06031

PATIENT
  Sex: Female

DRUGS (14)
  1. NOVOLOG [Suspect]
     Dosage: UNK
     Dates: start: 20110202, end: 20110203
  2. DICLOFENAC SODIUM [Suspect]
  3. LANTUS [Suspect]
     Dosage: UNK
     Dates: start: 20110202, end: 20110203
  4. ASPIRIN [Concomitant]
  5. NITRATES [Concomitant]
  6. LANTUS [Suspect]
     Dosage: UNK
     Dates: start: 20110218
  7. NOVOLOG [Suspect]
     Dosage: NO TREATMENT
     Dates: start: 20110204, end: 20110204
  8. LANTUS [Suspect]
     Dosage: NO TREATMENT
     Dates: start: 20110204, end: 20110204
  9. NOVOLOG [Suspect]
     Dosage: UNK
     Dates: start: 20110205, end: 20110214
  10. LANTUS [Suspect]
     Dosage: NO TREATMENT
     Dates: start: 20110215, end: 20110217
  11. RANEXA [Suspect]
  12. LANTUS [Suspect]
     Dosage: UNK
     Dates: start: 20110205, end: 20110214
  13. ACTOS [Suspect]
     Dosage: UNK
     Dates: start: 20101215, end: 20101226
  14. SAXAGLIPTIN [Suspect]

REACTIONS (7)
  - CHEST PAIN [None]
  - NON-CARDIAC CHEST PAIN [None]
  - RENAL FAILURE ACUTE [None]
  - CARDIAC FAILURE CONGESTIVE [None]
  - GASTROOESOPHAGEAL REFLUX DISEASE [None]
  - ABDOMINAL PAIN [None]
  - HYPERHIDROSIS [None]
